FAERS Safety Report 4652247-7 (Version None)
Quarter: 2005Q2

REPORT INFORMATION
  Report Type: 
  Country: None (occurrence: None)
  Receive Date: 20050504
  Receipt Date: 20050428
  Transmission Date: 20051028
  Serious: Yes (Hospitalization, Other)
  Sender: FDA-Public Use
  Company Number: PHBS2005CH06077

PATIENT
  Age: 73 Year
  Sex: Male

DRUGS (8)
  1. ISOPTIN SR [Suspect]
     Dosage: 120 MG, QD
     Route: 048
  2. LASIX [Suspect]
     Dosage: 40 MG, QD
     Route: 048
  3. XATRAL [Suspect]
     Dosage: 10 MG, QD
  4. FLUOXETINE [Suspect]
     Dosage: 20 MG, QD
     Route: 048
  5. ALLOPURINOL [Concomitant]
     Dosage: 300 MG, QD
     Route: 048
  6. SINTROM [Concomitant]
  7. SEROPRAM [Concomitant]
  8. LOPRESSOR [Suspect]
     Dosage: 100 MG, UNK
     Route: 048

REACTIONS (9)
  - BLOOD PRESSURE SYSTOLIC DECREASED [None]
  - BRADYARRHYTHMIA [None]
  - CARDIOMEGALY [None]
  - COLD SWEAT [None]
  - DIZZINESS [None]
  - DRUG INTERACTION [None]
  - HEART RATE DECREASED [None]
  - LOSS OF CONSCIOUSNESS [None]
  - SYNCOPE [None]
